FAERS Safety Report 23447232 (Version 3)
Quarter: 2024Q1

REPORT INFORMATION
  Report Type: Spontaneous
  Country: CA (occurrence: CA)
  Receive Date: 20240126
  Receipt Date: 20240208
  Transmission Date: 20240410
  Serious: Yes (Other)
  Sender: FDA-Public Use
  Company Number: CA-PFIZER INC-202300360336

PATIENT
  Age: 55 Year
  Sex: Female
  Weight: 68 kg

DRUGS (3)
  1. RUXIENCE [Suspect]
     Active Substance: RITUXIMAB-PVVR
     Indication: Neuromyelitis optica spectrum disorder
     Dosage: 1000 MG, DAY 1 AND DAY 15 (DOSAGE ADMINISTERED: 1000MG)
     Route: 042
     Dates: start: 20240122
  2. RUXIENCE [Suspect]
     Active Substance: RITUXIMAB-PVVR
     Dosage: 1000 MG, DAY 1 AND DAY 15 (DOSAGE ADMINISTERED: 1000MG)
     Route: 042
     Dates: start: 20240205
  3. DIPHENHYDRAMINE [Concomitant]
     Active Substance: DIPHENHYDRAMINE
     Indication: Premedication
     Dosage: UNK
     Dates: start: 20240122, end: 20240122

REACTIONS (5)
  - Nausea [Recovered/Resolved]
  - Throat irritation [Recovered/Resolved]
  - Secretion discharge [Recovered/Resolved]
  - Headache [Unknown]
  - Off label use [Unknown]

NARRATIVE: CASE EVENT DATE: 20240101
